FAERS Safety Report 9812549 (Version 2)
Quarter: 2014Q1

REPORT INFORMATION
  Report Type: Report from Study
  Country: TH (occurrence: TH)
  Receive Date: 20140113
  Receipt Date: 20140113
  Transmission Date: 20141002
  Serious: Yes (Life-Threatening, Hospitalization)
  Sender: FDA-Public Use
  Company Number: TH-ROCHE-1002014

PATIENT
  Age: 64 Year
  Sex: Female
  Weight: 67.2 kg

DRUGS (21)
  1. OBINUTUZUMAB [Suspect]
     Indication: DIFFUSE LARGE B-CELL LYMPHOMA
     Dosage: DOSE CONCENTRATION : 4 MG/ML.
     Route: 042
     Dates: start: 20110927
  2. CYCLOPHOSPHAMIDE [Suspect]
     Indication: DIFFUSE LARGE B-CELL LYMPHOMA
     Route: 042
     Dates: start: 20110928
  3. DOXORUBICIN [Suspect]
     Indication: DIFFUSE LARGE B-CELL LYMPHOMA
     Route: 042
     Dates: start: 20110928
  4. VINCRISTINE [Suspect]
     Indication: DIFFUSE LARGE B-CELL LYMPHOMA
     Route: 040
     Dates: start: 20110928
  5. PREDNISOLONE [Suspect]
     Indication: DIFFUSE LARGE B-CELL LYMPHOMA
     Dosage: DATE OF MOST RECENT DOSE (100 MG) PRIOR TO SAE : 02/OCT/2011.
     Route: 048
     Dates: start: 20110928
  6. AMLODIPINE [Concomitant]
     Indication: HYPERTENSION
  7. SIMVASTATIN [Concomitant]
     Indication: HYPERTENSION
  8. OMEPRAZOLE [Concomitant]
     Indication: PROPHYLAXIS
     Route: 042
     Dates: start: 20111008, end: 20111014
  9. OMEPRAZOLE [Concomitant]
     Route: 065
     Dates: start: 20110928, end: 20111002
  10. VALIUM [Concomitant]
     Indication: INSOMNIA
     Route: 065
     Dates: start: 20111008
  11. FLUIMUCIL (THAILAND) [Concomitant]
     Route: 065
     Dates: start: 20111017
  12. POTASSIUM CHLORIDE ELIXER [Concomitant]
     Indication: HYPOKALAEMIA
     Route: 065
     Dates: start: 20111016
  13. MILK OF MAGNESIA [Concomitant]
     Indication: CONSTIPATION
     Route: 065
     Dates: start: 20111013, end: 20111013
  14. MILK OF MAGNESIA [Concomitant]
     Route: 065
     Dates: start: 20111017
  15. LACTULOSE [Concomitant]
     Indication: CONSTIPATION
     Route: 065
     Dates: start: 20111013
  16. BENADRYL (THAILAND) [Concomitant]
     Indication: PREMEDICATION
     Route: 065
     Dates: start: 20110927, end: 20110927
  17. PARACETAMOL [Concomitant]
     Indication: PREMEDICATION
     Route: 065
     Dates: start: 20110927, end: 20110927
  18. DEXAMETHASONE [Concomitant]
     Indication: PREMEDICATION
     Route: 042
     Dates: start: 20110927, end: 20110927
  19. DEXAMETHASONE [Concomitant]
     Indication: FEBRILE NEUTROPENIA
     Route: 042
     Dates: start: 20111008, end: 20111008
  20. ONDANSETRON [Concomitant]
     Indication: VOMITING
     Route: 042
     Dates: start: 20110928, end: 20110928
  21. ONDANSETRON [Concomitant]
     Route: 048
     Dates: start: 20110928, end: 20111002

REACTIONS (3)
  - Febrile neutropenia [Recovered/Resolved]
  - Asthma [Recovered/Resolved]
  - Sepsis [Recovered/Resolved]
